FAERS Safety Report 6232257-9 (Version None)
Quarter: 2009Q2

REPORT INFORMATION
  Report Type: 
  Country: None (occurrence: None)
  Receive Date: 20090617
  Receipt Date: 20090605
  Transmission Date: 20091009
  Serious: Yes (Hospitalization, Other)
  Sender: FDA-Public Use
  Company Number: FR-PFIZER INC-2009212357

PATIENT
  Age: 52 Year

DRUGS (4)
  1. SUNITINIB MALATE [Suspect]
     Indication: BREAST CANCER
     Dosage: 37.5 MG, 1X/DAY
     Route: 042
     Dates: start: 20081025
  2. DOCETAXEL [Suspect]
     Indication: BREAST CANCER
     Dosage: 75 MG/M2, EVERY 3 WEEKS
     Route: 042
     Dates: start: 20081024, end: 20090318
  3. ZOMETA [Concomitant]
     Indication: METASTASES TO BONE
     Dosage: 4 MG, EVERY 28 DAYS
     Dates: start: 20081024
  4. ALDACTAZINE [Concomitant]
     Indication: OEDEMA PERIPHERAL
     Dosage: 1 DF, 1X/DAY
     Dates: start: 20090225

REACTIONS (1)
  - ATRIOVENTRICULAR BLOCK [None]
